FAERS Safety Report 10488143 (Version 4)
Quarter: 2015Q3

REPORT INFORMATION
  Report Type: Report from Study
  Country: US (occurrence: US)
  Receive Date: 20141002
  Receipt Date: 20150818
  Transmission Date: 20151125
  Serious: No
  Sender: FDA-Public Use
  Company Number: US-GILEAD-2014-0116770

PATIENT
  Age: 43 Year
  Sex: Female

DRUGS (3)
  1. AMBRISENTAN [Suspect]
     Active Substance: AMBRISENTAN
     Indication: PULMONARY HYPERTENSION
     Dosage: 5 MG, QD
     Route: 065
     Dates: start: 20140425
  2. AMBRISENTAN [Suspect]
     Active Substance: AMBRISENTAN
     Indication: COLLAGEN-VASCULAR DISEASE
  3. TYVASO [Concomitant]
     Active Substance: TREPROSTINIL

REACTIONS (3)
  - Syncope [Recovered/Resolved]
  - Fatigue [Unknown]
  - Dyspnoea [Unknown]
